FAERS Safety Report 23748935 (Version 1)
Quarter: 2024Q2

REPORT INFORMATION
  Report Type: Spontaneous
  Country: US (occurrence: US)
  Receive Date: 20240416
  Receipt Date: 20240416
  Transmission Date: 20240716
  Serious: Yes (Other)
  Sender: FDA-Public Use
  Company Number: US-AVADEL CNS PHARMACEUTICALS, LLC-2024AVA00398

PATIENT
  Age: 59 Year
  Sex: Male
  Weight: 113.38 kg

DRUGS (1)
  1. LUMRYZ [Suspect]
     Active Substance: SODIUM OXYBATE
     Indication: Narcolepsy
     Dosage: 9 G, ONCE AT BEDTIME
     Dates: start: 20240223, end: 20240223

REACTIONS (12)
  - Altered state of consciousness [Recovered/Resolved]
  - Dyspnoea [Recovered/Resolved]
  - Poor quality sleep [Recovered/Resolved]
  - Feeling cold [Recovered/Resolved]
  - Middle insomnia [Recovered/Resolved]
  - Haemorrhage [Recovered/Resolved]
  - Abnormal sleep-related event [Recovered/Resolved]
  - Limb injury [Recovered/Resolved]
  - Skin laceration [Recovering/Resolving]
  - Brain fog [Unknown]
  - Tremor [Recovered/Resolved]
  - Somnolence [Recovered/Resolved]

NARRATIVE: CASE EVENT DATE: 20240201
